FAERS Safety Report 12233282 (Version 5)
Quarter: 2017Q1

REPORT INFORMATION
  Report Type: Spontaneous
  Country: GB (occurrence: GB)
  Receive Date: 20160404
  Receipt Date: 20170126
  Transmission Date: 20170428
  Serious: Yes (Hospitalization)
  Sender: FDA-Public Use
  Company Number: GB-HOSPIRA-3228609

PATIENT
  Age: 79 Year
  Sex: Male

DRUGS (6)
  1. DEFEROXAMINE MESILATE [Suspect]
     Active Substance: DEFEROXAMINE MESYLATE
     Dosage: 1 G, EVERY NIGHT OVER 8 HOURS, FREQ: 5 WEEK; INTERVAL: 1
     Route: 058
     Dates: start: 20160322
  2. SODIUM CHLORIDE. [Suspect]
     Active Substance: SODIUM CHLORIDE
     Dosage: 41 ML, EVERY NIGHT OVER 8 HOURS, FREQ: 5 WEEK; INTERVAL: 1
     Route: 058
     Dates: start: 20160322
  3. WATER FOR INJECTION [Suspect]
     Active Substance: WATER
     Indication: MEDICATION DILUTION
     Dosage: EVERY NIGHT OVER 8 HOURS, FREQ: 5 WEEK; INTERVAL: 1
     Route: 058
     Dates: start: 20160307
  4. DEFEROXAMINE MESILATE [Suspect]
     Active Substance: DEFEROXAMINE MESYLATE
     Dosage: 1 G, EVERY NIGHT OVER 8 HOURS, FREQ: 5 WEEK; INTERVAL: 1
     Route: 058
     Dates: start: 20160307
  5. SODIUM CHLORIDE. [Suspect]
     Active Substance: SODIUM CHLORIDE
     Indication: MEDICATION DILUTION
     Dosage: 41 ML, EVERY NIGHT OVER 8 HOURS, FREQ: 5 WEEK; INTERVAL: 1
     Route: 058
     Dates: start: 20160307
  6. WATER FOR INJECTION [Suspect]
     Active Substance: WATER
     Dosage: EVERY NIGHT OVER 8 HOURS, FREQ: 5 WEEK; INTERVAL: 1
     Route: 058
     Dates: start: 20160322

REACTIONS (2)
  - Decreased appetite [Unknown]
  - Dehydration [Unknown]

NARRATIVE: CASE EVENT DATE: 20160322
